FAERS Safety Report 25896171 (Version 2)
Quarter: 2025Q4

REPORT INFORMATION
  Report Type: Spontaneous
  Country: CA (occurrence: CA)
  Receive Date: 20251008
  Receipt Date: 20251201
  Transmission Date: 20260117
  Serious: Yes (Other)
  Sender: SANOFI AVENTIS
  Company Number: CA-SA-2025SA297345

PATIENT
  Age: 42 Year
  Sex: Male
  Weight: 79 kg

DRUGS (2)
  1. ADMELOG [Suspect]
     Active Substance: INSULIN LISPRO
     Indication: Type 1 diabetes mellitus
     Dosage: 10 IU, TID
     Route: 058
     Dates: start: 20231205, end: 20250416
  2. BASAGLAR [Concomitant]
     Active Substance: INSULIN GLARGINE
     Dosage: 20 U, QD
     Route: 058

REACTIONS (2)
  - Increased insulin requirement [Unknown]
  - Drug ineffective [Unknown]

NARRATIVE: CASE EVENT DATE: 20231205
